FAERS Safety Report 20010465 (Version 1)
Quarter: 2021Q4

REPORT INFORMATION
  Report Type: Spontaneous
  Country: US (occurrence: US)
  Receive Date: 20211029
  Receipt Date: 20211029
  Transmission Date: 20220303
  Serious: Yes (Other)
  Sender: FDA-Public Use
  Company Number: US-SUN PHARMACEUTICAL INDUSTRIES LTD-2021R1-316168

PATIENT
  Age: 59 Year
  Sex: Female

DRUGS (1)
  1. SUMATRIPTAN [Suspect]
     Active Substance: SUMATRIPTAN
     Indication: Product used for unknown indication
     Dosage: UNK (SINGLE DOSE)
     Route: 048

REACTIONS (3)
  - Acute coronary syndrome [Unknown]
  - Transient global amnesia [Unknown]
  - Acute myocardial infarction [Unknown]
